FAERS Safety Report 8904803 (Version 1)
Quarter: 2012Q4

REPORT INFORMATION
  Report Type: 
  Country: US (occurrence: US)
  Receive Date: 20121113
  Receipt Date: 20121113
  Transmission Date: 20130627
  Serious: No
  Sender: FDA-Public Use
  Company Number: US-009507513-1211USA001792

PATIENT
  Age: 21 Year
  Sex: Female

DRUGS (2)
  1. TEMODAR [Suspect]
     Indication: GLIOBLASTOMA MULTIFORME
     Dosage: 200 mg/m2, UNK
     Route: 048
  2. TEMODAR [Suspect]
     Dosage: 90 mg, UNK
     Route: 048

REACTIONS (1)
  - Vulvovaginal pruritus [Unknown]
